FAERS Safety Report 20232477 (Version 1)
Quarter: 2021Q4

REPORT INFORMATION
  Report Type: Spontaneous
  Country: None (occurrence: US)
  Receive Date: 20211227
  Receipt Date: 20211227
  Transmission Date: 20220304
  Serious: No
  Sender: FDA-Public Use
  Company Number: US-Nephron Pharmaceuticals Corporation-2123394

PATIENT
  Age: 77 Year
  Sex: Female
  Weight: 59.091 kg

DRUGS (2)
  1. IPRATROPIUM BROMIDE AND ALBUTEROL SULFATE [Suspect]
     Active Substance: ALBUTEROL SULFATE\IPRATROPIUM BROMIDE
     Indication: Chronic obstructive pulmonary disease
     Route: 055
  2. BUDESONIDE [Concomitant]
     Active Substance: BUDESONIDE
     Route: 055

REACTIONS (1)
  - Urinary tract infection [Recovering/Resolving]
